FAERS Safety Report 17184331 (Version 1)
Quarter: 2019Q4

REPORT INFORMATION
  Report Type: Spontaneous
  Country: US (occurrence: US)
  Receive Date: 20191127
  Receipt Date: 20191127
  Transmission Date: 20200122
  Serious: Yes (Other)
  Sender: FDA-Public Use
  Company Number: None

PATIENT
  Age: 40 Year
  Sex: Female
  Weight: 67.13 kg

DRUGS (1)
  1. SUBOXONE [Suspect]
     Active Substance: BUPRENORPHINE HYDROCHLORIDE\NALOXONE HYDROCHLORIDE
     Indication: DRUG DEPENDENCE
     Dosage: ?          OTHER DOSE:8MG/2MG;?
     Route: 048
     Dates: start: 20190901, end: 20190910

REACTIONS (3)
  - Abdominal distension [None]
  - Drug hypersensitivity [None]
  - Abdominal pain [None]

NARRATIVE: CASE EVENT DATE: 20190912
